FAERS Safety Report 25214332 (Version 1)
Quarter: 2025Q2

REPORT INFORMATION
  Report Type: Spontaneous
  Country: US (occurrence: None)
  Receive Date: 20250417
  Receipt Date: 20250417
  Transmission Date: 20250717
  Serious: Yes (Life-Threatening, Hospitalization)
  Sender: FDA-CTU
  Company Number: None

PATIENT
  Age: 76 Year
  Sex: Male
  Weight: 97 kg

DRUGS (1)
  1. ACETYLCYSTEINE [Suspect]
     Active Substance: ACETYLCYSTEINE
     Indication: Hypertransaminasaemia
     Route: 042
     Dates: start: 20241019, end: 20241019

REACTIONS (3)
  - Anaphylactic reaction [None]
  - Fall [None]
  - Limb injury [None]

NARRATIVE: CASE EVENT DATE: 20241019
